FAERS Safety Report 16007773 (Version 1)
Quarter: 2019Q1

REPORT INFORMATION
  Report Type: Other
  Country: IT (occurrence: IT)
  Receive Date: 20190224
  Receipt Date: 20190224
  Transmission Date: 20190418
  Serious: Yes (Hospitalization, Other)
  Sender: FDA-Public Use
  Company Number: IT-APOTEX-2019AP008252

PATIENT
  Age: 21 Year
  Sex: Male

DRUGS (5)
  1. RISPERDAL [Suspect]
     Active Substance: RISPERIDONE
     Indication: PRODUCT USED FOR UNKNOWN INDICATION
     Dosage: 20 MG, IN TOTAL
     Route: 048
     Dates: start: 20160315, end: 20160315
  2. RISPERDAL [Suspect]
     Active Substance: RISPERIDONE
     Dosage: 2 MG, IN TOTAL
     Route: 048
     Dates: start: 20160315, end: 20160315
  3. DEPAKIN CHRONO                     /00228502/ [Concomitant]
     Active Substance: VALPROATE SODIUM
     Indication: PRODUCT USED FOR UNKNOWN INDICATION
     Dosage: 500 MG, UNK
     Route: 048
  4. RIVOTRIL [Suspect]
     Active Substance: CLONAZEPAM
     Indication: PRODUCT USED FOR UNKNOWN INDICATION
     Dosage: UNK
     Route: 065
  5. OLANZAPINE. [Suspect]
     Active Substance: OLANZAPINE
     Indication: PRODUCT USED FOR UNKNOWN INDICATION
     Dosage: 5 MG, IN TOTAL
     Route: 048
     Dates: start: 20160315, end: 20160315

REACTIONS (3)
  - Intentional overdose [Unknown]
  - Intentional self-injury [Recovered/Resolved]
  - Agitation [Recovered/Resolved]

NARRATIVE: CASE EVENT DATE: 20160315
